FAERS Safety Report 11663040 (Version 1)
Quarter: 2015Q4

REPORT INFORMATION
  Report Type: Spontaneous
  Country: US (occurrence: US)
  Receive Date: 20151027
  Receipt Date: 20151027
  Transmission Date: 20160304
  Serious: Yes (Other)
  Sender: FDA-Public Use
  Company Number: US-MEDA-2010070044

PATIENT
  Age: 59 Year
  Sex: Male

DRUGS (11)
  1. ONSOLIS [Suspect]
     Active Substance: FENTANYL CITRATE
     Indication: CANCER PAIN
     Dosage: TITRATE UP TO 4-200MCG FILMS
     Route: 002
     Dates: start: 20100428, end: 20100519
  2. LYRICA [Concomitant]
     Active Substance: PREGABALIN
     Route: 048
  3. DBBCG [Concomitant]
     Dosage: 5/2/1/2 %
     Route: 061
  4. PERCOCET [Concomitant]
     Active Substance: ACETAMINOPHEN\OXYCODONE HYDROCHLORIDE
     Dosage: 5 MG/325 MG
     Route: 048
  5. AMBIEN [Concomitant]
     Active Substance: ZOLPIDEM TARTRATE
  6. AMITIZA [Concomitant]
     Active Substance: LUBIPROSTONE
  7. LEXAPRO [Concomitant]
     Active Substance: ESCITALOPRAM OXALATE
  8. ONSOLIS [Suspect]
     Active Substance: FENTANYL CITRATE
     Indication: CANCER PAIN
     Route: 002
     Dates: start: 20100520, end: 2010
  9. ZOFRAN [Concomitant]
     Active Substance: ONDANSETRON HYDROCHLORIDE
  10. LOTREL [Concomitant]
     Active Substance: AMLODIPINE BESYLATE\BENAZEPRIL HYDROCHLORIDE
     Dosage: 10 MG /20 MG
  11. OXYCONTIN [Concomitant]
     Active Substance: OXYCODONE HYDROCHLORIDE
     Route: 048
     Dates: end: 2010

REACTIONS (3)
  - Vomiting [Unknown]
  - Weight decreased [Not Recovered/Not Resolved]
  - Constipation [Unknown]

NARRATIVE: CASE EVENT DATE: 2010
